FAERS Safety Report 9470067 (Version 1)
Quarter: 2013Q3

REPORT INFORMATION
  Report Type: Spontaneous
  Country: DK (occurrence: NL)
  Receive Date: 20130822
  Receipt Date: 20130822
  Transmission Date: 20140515
  Serious: Yes (Congenital Anomaly)
  Sender: FDA-Public Use
  Company Number: NL-FRI-1000047953

PATIENT
  Age: 0 Day
  Sex: Female
  Weight: 3.2 kg

DRUGS (2)
  1. CITALOPRAM [Suspect]
     Dosage: 10 MG
     Route: 064
     Dates: start: 2012
  2. OMEPRAZOL [Concomitant]
     Dosage: 40 MG
     Route: 064
     Dates: start: 2012

REACTIONS (2)
  - Congenital anomaly [Not Recovered/Not Resolved]
  - Foetal exposure during pregnancy [Recovered/Resolved]
